FAERS Safety Report 15334873 (Version 5)
Quarter: 2018Q4

REPORT INFORMATION
  Report Type: Spontaneous
  Country: JP (occurrence: JP)
  Receive Date: 20180830
  Receipt Date: 20181109
  Transmission Date: 20190204
  Serious: Yes (Hospitalization, Other)
  Sender: FDA-Public Use
  Company Number: JP-009507513-1808JPN002349J

PATIENT
  Age: 73 Year
  Sex: Female
  Weight: 53 kg

DRUGS (9)
  1. KEYTRUDA [Suspect]
     Active Substance: PEMBROLIZUMAB
     Indication: TRANSITIONAL CELL CARCINOMA
     Dosage: 200 MG, Q3W
     Route: 041
     Dates: start: 20180628, end: 20180723
  2. OXINORM (OXYCODONE HYDROCHLORIDE) [Concomitant]
     Active Substance: OXYCODONE HYDROCHLORIDE
     Indication: PAIN MANAGEMENT
     Dosage: UNK, PRN
     Route: 048
     Dates: start: 20180606
  3. BAYASPIRIN [Concomitant]
     Active Substance: ASPIRIN
     Indication: ANGINA PECTORIS
     Dosage: 100 MG, QD
     Route: 048
     Dates: end: 2018
  4. CALONAL [Concomitant]
     Active Substance: ACETAMINOPHEN
     Indication: PAIN MANAGEMENT
     Dosage: 600 MG, QID
     Route: 048
     Dates: start: 20180626
  5. ARTIST [Concomitant]
     Active Substance: CARVEDILOL
     Dosage: UNK, UNKNOWN
     Route: 065
  6. TEPRENONE [Concomitant]
     Active Substance: TEPRENONE
     Indication: GASTRITIS PROPHYLAXIS
     Dosage: 50 MG, BID
     Route: 048
     Dates: end: 2018
  7. OXYCODONE [Concomitant]
     Active Substance: OXYCODONE
     Dosage: ONE TABLE IN THE MORNING, TWO TABLES A NIGHT, BIDA NIGHT
     Route: 048
     Dates: start: 20180704
  8. NAIXAN [Concomitant]
     Active Substance: NAPROXEN SODIUM
     Indication: ANTIPYRESIS
     Dosage: 100 MG, BID
     Route: 048
     Dates: start: 20180709
  9. OXYCODONE [Concomitant]
     Active Substance: OXYCODONE
     Indication: PAIN MANAGEMENT
     Dosage: 10 MG, BID
     Route: 048
     Dates: start: 20180606, end: 20180704

REACTIONS (4)
  - Malaise [Recovering/Resolving]
  - Gastric ulcer [Recovered/Resolved]
  - Hepatic function abnormal [Not Recovered/Not Resolved]
  - Physical deconditioning [Recovering/Resolving]

NARRATIVE: CASE EVENT DATE: 20180813
